FAERS Safety Report 20810777 (Version 3)
Quarter: 2023Q2

REPORT INFORMATION
  Report Type: Spontaneous
  Country: US (occurrence: US)
  Receive Date: 20220510
  Receipt Date: 20230501
  Transmission Date: 20230721
  Serious: No
  Sender: FDA-Public Use
  Company Number: US-PFIZER INC-202200625346

PATIENT
  Age: 49 Year
  Sex: Female

DRUGS (2)
  1. XELJANZ XR [Suspect]
     Active Substance: TOFACITINIB CITRATE
     Indication: Rheumatoid arthritis
     Dosage: UNK
     Dates: start: 20201118, end: 20220316
  2. XELJANZ XR [Suspect]
     Active Substance: TOFACITINIB CITRATE
     Dosage: UNK

REACTIONS (8)
  - Heart rate increased [Unknown]
  - Cardiac disorder [Unknown]
  - Asthenopia [Unknown]
  - Eye pain [Unknown]
  - Eye irritation [Unknown]
  - Rash [Unknown]
  - Headache [Unknown]
  - Gastric disorder [Unknown]
